FAERS Safety Report 13452521 (Version 1)
Quarter: 2017Q2

REPORT INFORMATION
  Report Type: Spontaneous
  Country: PH (occurrence: PH)
  Receive Date: 20170418
  Receipt Date: 20170418
  Transmission Date: 20170830
  Serious: Yes (Hospitalization, Other)
  Sender: FDA-Public Use
  Company Number: PH-SA-2017SA064423

PATIENT
  Sex: Male
  Weight: 65 kg

DRUGS (6)
  1. COLCHICINE. [Concomitant]
     Active Substance: COLCHICINE
     Dates: start: 20150606
  2. PARACETAMOL [Concomitant]
     Active Substance: ACETAMINOPHEN
     Dates: start: 20150606, end: 20150611
  3. CEFTRIAXONE. [Concomitant]
     Active Substance: CEFTRIAXONE
     Route: 042
     Dates: start: 20150606, end: 20150611
  4. LOSARTAN. [Concomitant]
     Active Substance: LOSARTAN
     Dates: start: 2014
  5. AGALSIDASE BETA [Suspect]
     Active Substance: AGALSIDASE BETA
     Indication: FABRY^S DISEASE
     Route: 041
     Dates: start: 20140625
  6. VANCOMYCIN [Concomitant]
     Active Substance: VANCOMYCIN
     Route: 042
     Dates: start: 20150606, end: 20150611

REACTIONS (5)
  - Erythema [Recovered/Resolved]
  - Oedema [Recovered/Resolved]
  - Cellulitis [Recovered/Resolved]
  - End stage renal disease [Unknown]
  - Pyrexia [Recovered/Resolved]

NARRATIVE: CASE EVENT DATE: 20150531
